FAERS Safety Report 13011267 (Version 1)
Quarter: 2016Q4

REPORT INFORMATION
  Report Type: Spontaneous
  Country: FR (occurrence: FR)
  Receive Date: 20161209
  Receipt Date: 20161209
  Transmission Date: 20170207
  Serious: Yes (Hospitalization, Other)
  Sender: FDA-Public Use
  Company Number: FR-ROCHE-1864584

PATIENT
  Sex: Female
  Weight: 54 kg

DRUGS (2)
  1. CICLOSPORIN [Suspect]
     Active Substance: CYCLOSPORINE
     Indication: PRODUCT USED FOR UNKNOWN INDICATION
     Dosage: UNK
     Route: 065
     Dates: start: 201601
  2. XOLAIR [Suspect]
     Active Substance: OMALIZUMAB
     Indication: PRODUCT USED FOR UNKNOWN INDICATION
     Dosage: UNK
     Route: 065
     Dates: start: 2015, end: 2015

REACTIONS (9)
  - Dermatitis atopic [Not Recovered/Not Resolved]
  - Anaphylactic shock [Unknown]
  - Ataxia [Unknown]
  - Tachycardia [Unknown]
  - Blood immunoglobulin E increased [Unknown]
  - Gastrointestinal disorder [Unknown]
  - Malaise [Unknown]
  - Mast cell activation syndrome [Unknown]
  - Dermatosis [Unknown]
